FAERS Safety Report 8030478-6 (Version None)
Quarter: 2012Q1

REPORT INFORMATION
  Report Type: 
  Country: None (occurrence: None)
  Receive Date: 20120109
  Receipt Date: 20111227
  Transmission Date: 20120608
  Serious: Yes (Other)
  Sender: FDA-Public Use
  Company Number: IT-ABBOTT-12P-083-0889317-00

PATIENT
  Age: 31 Year
  Sex: Female

DRUGS (1)
  1. LEUPROLIDE 11.25 MG [Suspect]
     Indication: PRODUCT USED FOR UNKNOWN INDICATION

REACTIONS (1)
  - POLYCYSTIC OVARIES [None]
